FAERS Safety Report 9540662 (Version 2)
Quarter: 2013Q4

REPORT INFORMATION
  Report Type: Spontaneous
  Country: DE (occurrence: DE)
  Receive Date: 20130920
  Receipt Date: 20131114
  Transmission Date: 20140711
  Serious: No
  Sender: FDA-Public Use
  Company Number: DE-AMGEN-DEUSP2013064742

PATIENT
  Age: 55 Year
  Sex: Male
  Weight: 70 kg

DRUGS (6)
  1. MIMPARA [Suspect]
     Indication: HYPERPARATHYROIDISM SECONDARY
     Dosage: 30 MG, QD
     Route: 048
     Dates: start: 20130901, end: 20130905
  2. ENAHEXAL                           /00574902/ [Concomitant]
     Indication: BLOOD PRESSURE
     Dosage: 10, BID
     Route: 048
  3. AMLODIPINE [Concomitant]
     Indication: BLOOD PRESSURE
     Dosage: 10, QD
     Route: 048
  4. TOREM                              /01036501/ [Concomitant]
     Indication: BLOOD PRESSURE
     Dosage: 200
     Route: 048
  5. CLONIDIN [Concomitant]
     Indication: BLOOD PRESSURE
     Dosage: 250, BID
     Route: 048
  6. RENVELA [Concomitant]
     Indication: NUTRITIONAL SUPPLEMENTATION
     Dosage: 2,4, TID
     Dates: start: 20110411

REACTIONS (1)
  - Diarrhoea [Recovered/Resolved]
